FAERS Safety Report 6906820-3 (Version None)
Quarter: 2010Q3

REPORT INFORMATION
  Report Type: 
  Country: None (occurrence: None)
  Receive Date: 20100804
  Receipt Date: 20100723
  Transmission Date: 20110219
  Serious: Yes (Other)
  Sender: FDA-Public Use
  Company Number: US-ELI_LILLY_AND_COMPANY-US200903003309

PATIENT
  Sex: Female
  Weight: 90.249 kg

DRUGS (9)
  1. BYETTA [Suspect]
     Dosage: UNK, UNK
     Dates: start: 20050525, end: 20090422
  2. COREG [Concomitant]
  3. LISINOPRIL [Concomitant]
  4. LANTUS [Concomitant]
  5. NOVOLOG [Concomitant]
  6. PAXIL [Concomitant]
  7. LIPITOR [Concomitant]
  8. VITAMIN D [Concomitant]
  9. FOLIC ACID [Concomitant]

REACTIONS (3)
  - OFF LABEL USE [None]
  - PANCREATITIS [None]
  - RENAL INJURY [None]
